FAERS Safety Report 8221812 (Version 2)
Quarter: 2012Q4

REPORT INFORMATION
  Report Type: 
  Country: CA (occurrence: CA)
  Receive Date: 20111102
  Receipt Date: 20120905
  Transmission Date: 20130627
  Serious: Yes (Other)
  Sender: FDA-Public Use
  Company Number: CA-AMGEN-CANSP2011055730

PATIENT
  Age: 46 Year
  Sex: Female

DRUGS (7)
  1. ENBREL [Suspect]
     Indication: PRODUCT USED FOR UNKNOWN INDICATION
     Dosage: 50 mg, qwk
     Route: 058
  2. ANTITHYMOCYTE IMMUNOGLOBULIN (RABBIT) [Suspect]
     Dosage: 6 mg/kg, UNK
  3. MYCOPHENOLATE MOFETIL [Suspect]
     Dosage: UNK
  4. PROGRAF [Suspect]
     Dosage: 2 mg, q12h
     Route: 048
  5. PROGRAF [Suspect]
     Dosage: UNK
  6. RAPAMUNE [Suspect]
     Dosage: UNK
  7. ZENAPAX [Suspect]
     Dosage: UNK
     Route: 042

REACTIONS (3)
  - Alopecia [Unknown]
  - Graft dysfunction [Unknown]
  - Pneumonia [Unknown]
